FAERS Safety Report 16073124 (Version 2)
Quarter: 2019Q1

REPORT INFORMATION
  Report Type: Report from Study
  Country: US (occurrence: US)
  Receive Date: 20190314
  Receipt Date: 20190320
  Transmission Date: 20190418
  Serious: No
  Sender: FDA-Public Use
  Company Number: US-ALEXION PHARMACEUTICALS INC.-A201903755

PATIENT
  Sex: Male

DRUGS (1)
  1. SOLIRIS [Suspect]
     Active Substance: ECULIZUMAB
     Indication: PRODUCT USED FOR UNKNOWN INDICATION
     Route: 065

REACTIONS (19)
  - Haemoglobin abnormal [Unknown]
  - Disease risk factor [Unknown]
  - Aspartate aminotransferase abnormal [Unknown]
  - Total cholesterol/HDL ratio abnormal [Unknown]
  - Glucose urine [Unknown]
  - Blood lactate dehydrogenase increased [Unknown]
  - Blood glucose increased [Unknown]
  - Haematocrit abnormal [Unknown]
  - Protein urine present [Unknown]
  - Occult blood positive [Unknown]
  - Blood bilirubin increased [Unknown]
  - Blood thyroid stimulating hormone abnormal [Unknown]
  - Albumin globulin ratio increased [Unknown]
  - Red cell distribution width abnormal [Unknown]
  - High density lipoprotein increased [Unknown]
  - Red blood cells urine [Unknown]
  - Haptoglobin abnormal [Unknown]
  - Red blood cell count abnormal [Unknown]
  - Reticulocyte count abnormal [Unknown]

NARRATIVE: CASE EVENT DATE: 20190131
